FAERS Safety Report 18698122 (Version 1)
Quarter: 2021Q1

REPORT INFORMATION
  Report Type: Report from Study
  Country: KR (occurrence: KR)
  Receive Date: 20210105
  Receipt Date: 20210105
  Transmission Date: 20210419
  Serious: Yes (Hospitalization)
  Sender: FDA-Public Use
  Company Number: KR-BIOGEN-2020BI00962980

PATIENT
  Age: 37 Year
  Sex: Male
  Weight: 72 kg

DRUGS (8)
  1. BEECOM [Concomitant]
     Indication: VITAMIN SUPPLEMENTATION
     Route: 048
     Dates: start: 20160404
  2. PALPAL [Concomitant]
     Active Substance: SILDENAFIL CITRATE
     Indication: PROPHYLAXIS
     Route: 048
     Dates: start: 20171006
  3. TECFIDERA [Suspect]
     Active Substance: DIMETHYL FUMARATE
     Indication: RELAPSING-REMITTING MULTIPLE SCLEROSIS
     Route: 048
     Dates: start: 20190430, end: 20190506
  4. BACRON [Concomitant]
     Indication: PRODUCT USED FOR UNKNOWN INDICATION
     Route: 048
     Dates: start: 20140314, end: 20191227
  5. LYRIBEAR [Concomitant]
     Indication: PRODUCT USED FOR UNKNOWN INDICATION
     Route: 048
     Dates: start: 20180808, end: 20190512
  6. TECFIDERA [Suspect]
     Active Substance: DIMETHYL FUMARATE
     Route: 048
     Dates: start: 20190507
  7. LYRIBEAR [Concomitant]
     Route: 048
     Dates: start: 20190513, end: 20190526
  8. LYRIBEAR [Concomitant]
     Route: 048
     Dates: start: 20190527

REACTIONS (5)
  - White blood cell disorder [Recovered/Resolved]
  - Hemiparesis [Not Recovered/Not Resolved]
  - Multiple sclerosis relapse [Unknown]
  - Blood urea abnormal [Recovered/Resolved]
  - Alanine aminotransferase abnormal [Recovered/Resolved]

NARRATIVE: CASE EVENT DATE: 20190624
